FAERS Safety Report 19665711 (Version 1)
Quarter: 2021Q3

REPORT INFORMATION
  Report Type: Spontaneous
  Country: US (occurrence: US)
  Receive Date: 20210805
  Receipt Date: 20210805
  Transmission Date: 20211014
  Serious: Yes (Hospitalization)
  Sender: FDA-Public Use
  Company Number: None

PATIENT
  Age: 72 Year
  Sex: Female
  Weight: 39.5 kg

DRUGS (1)
  1. JANUVIA [Suspect]
     Active Substance: SITAGLIPTIN PHOSPHATE
     Indication: TYPE 2 DIABETES MELLITUS
     Route: 048
     Dates: start: 20210804

REACTIONS (4)
  - Carbon dioxide decreased [None]
  - Blood ketone body increased [None]
  - Euglycaemic diabetic ketoacidosis [None]
  - Diabetic ketosis [None]

NARRATIVE: CASE EVENT DATE: 20210804
